FAERS Safety Report 13796072 (Version 1)
Quarter: 2017Q3

REPORT INFORMATION
  Report Type: Spontaneous
  Country: GB (occurrence: GB)
  Receive Date: 20170726
  Receipt Date: 20170726
  Transmission Date: 20171127
  Serious: Yes (Other)
  Sender: FDA-Public Use
  Company Number: GB-TEVA-788646ACC

PATIENT
  Age: 68 Year
  Sex: Female
  Weight: 94.8 kg

DRUGS (15)
  1. GENTAMICIN. [Concomitant]
     Active Substance: GENTAMICIN
  2. OMEPRAZOLE. [Concomitant]
     Active Substance: OMEPRAZOLE
  3. PARACETAMOL [Concomitant]
     Active Substance: ACETAMINOPHEN
  4. PROCHLORPERAZINE. [Concomitant]
     Active Substance: PROCHLORPERAZINE
  5. LEVOFLOXACIN. [Suspect]
     Active Substance: LEVOFLOXACIN
     Indication: DISSEMINATED BACILLUS CALMETTE-GUERIN INFECTION
     Dosage: 1000 MILLIGRAM DAILY;
     Route: 048
     Dates: start: 20170329, end: 20170622
  6. CYCLIZINE [Concomitant]
     Active Substance: CYCLIZINE
  7. ETHAMBUTOL [Concomitant]
     Active Substance: ETHAMBUTOL HYDROCHLORIDE
     Indication: DISSEMINATED BACILLUS CALMETTE-GUERIN INFECTION
     Dates: start: 20170305
  8. PYRIDOXINE [Concomitant]
     Active Substance: PYRIDOXINE
  9. RIFINAH [Concomitant]
     Active Substance: ISONIAZID\RIFAMPIN
     Indication: DISSEMINATED BACILLUS CALMETTE-GUERIN INFECTION
     Dates: start: 20170305, end: 20170329
  10. ONDANSETRON [Concomitant]
     Active Substance: ONDANSETRON
  11. AMOXICILLIN. [Concomitant]
     Active Substance: AMOXICILLIN
  12. CIPROFLOXACIN. [Concomitant]
     Active Substance: CIPROFLOXACIN
     Indication: PYELONEPHRITIS
     Dates: start: 20170313
  13. ENOXAPARIN [Concomitant]
     Active Substance: ENOXAPARIN
  14. MUPIROCIN. [Concomitant]
     Active Substance: MUPIROCIN
  15. PREDNISOLONE. [Concomitant]
     Active Substance: PREDNISOLONE
     Indication: DISSEMINATED BACILLUS CALMETTE-GUERIN INFECTION
     Dates: start: 20170305

REACTIONS (2)
  - Musculoskeletal stiffness [Unknown]
  - Joint stiffness [Unknown]

NARRATIVE: CASE EVENT DATE: 20170511
